FAERS Safety Report 13834626 (Version 1)
Quarter: 2017Q3

REPORT INFORMATION
  Report Type: Report from Study
  Country: VN (occurrence: VN)
  Receive Date: 20170804
  Receipt Date: 20170804
  Transmission Date: 20171127
  Serious: Yes (Other)
  Sender: FDA-Public Use
  Company Number: VN-ROCHE-1973481

PATIENT

DRUGS (2)
  1. CAPECITABINE. [Suspect]
     Active Substance: CAPECITABINE
     Indication: RECTAL CANCER STAGE II
     Route: 065
  2. CAPECITABINE. [Suspect]
     Active Substance: CAPECITABINE
     Indication: RECTAL CANCER STAGE III

REACTIONS (6)
  - Nausea [Unknown]
  - Diarrhoea [Unknown]
  - White blood cell count decreased [Unknown]
  - Proctitis [Unknown]
  - Palmar-plantar erythrodysaesthesia syndrome [Unknown]
  - Radiation skin injury [Unknown]
